FAERS Safety Report 5916572-1 (Version None)
Quarter: 2008Q4

REPORT INFORMATION
  Report Type: 
  Country: None (occurrence: None)
  Receive Date: 20081013
  Receipt Date: 20080919
  Transmission Date: 20090506
  Serious: Yes (Life-Threatening, Other)
  Sender: FDA-Public Use
  Company Number: PHHY2008BR24029

PATIENT
  Age: 37 Year
  Sex: Male

DRUGS (1)
  1. DIOVAN [Suspect]
     Indication: HYPERTENSION
     Dosage: 320 MG, DAILY
     Route: 048
     Dates: start: 20071115, end: 20071201

REACTIONS (9)
  - ACUTE MYOCARDIAL INFARCTION [None]
  - ANGIOPLASTY [None]
  - DYSPNOEA [None]
  - ENDOTRACHEAL INTUBATION [None]
  - FEELING ABNORMAL [None]
  - HYPERKALAEMIA [None]
  - MALAISE [None]
  - MECHANICAL VENTILATION [None]
  - PULMONARY OEDEMA [None]
